FAERS Safety Report 5913812-X (Version None)
Quarter: 2008Q4

REPORT INFORMATION
  Report Type: 
  Country: None (occurrence: None)
  Receive Date: 20081009
  Receipt Date: 20081001
  Transmission Date: 20090506
  Serious: Yes (Other)
  Sender: FDA-Public Use
  Company Number: KR-GILEAD-2008-0018421

PATIENT
  Age: 42 Year
  Sex: Male

DRUGS (1)
  1. HEPSERA [Suspect]

REACTIONS (2)
  - HYPOPHOSPHATAEMIA [None]
  - OSTEOMALACIA [None]
